FAERS Safety Report 4519899-3 (Version None)
Quarter: 2004Q4

REPORT INFORMATION
  Report Type: 
  Country: None (occurrence: None)
  Receive Date: 20041207
  Receipt Date: 20041129
  Transmission Date: 20050328
  Serious: Yes (Hospitalization, Other)
  Sender: FDA-Public Use
  Company Number: PHBS2004FR16123

PATIENT
  Age: 51 Year

DRUGS (3)
  1. CYCLOSPORINE [Suspect]
     Indication: HEART TRANSPLANT
     Route: 065
  2. PREDNISONE [Suspect]
     Indication: HEART TRANSPLANT
     Route: 065
  3. PENTOSTATIN [Suspect]

REACTIONS (13)
  - BLOOD CREATININE INCREASED [None]
  - CD4 LYMPHOCYTES DECREASED [None]
  - FEBRILE NEUTROPENIA [None]
  - GOUT [None]
  - HAIRY CELL LEUKAEMIA [None]
  - HEART TRANSPLANT REJECTION [None]
  - LEUKOPENIA [None]
  - LYMPHOCYTE COUNT DECREASED [None]
  - NAUSEA [None]
  - NEUTROPENIA [None]
  - RENAL IMPAIRMENT [None]
  - THROMBOCYTOPENIA [None]
  - VOMITING [None]
